FAERS Safety Report 24246251 (Version 2)
Quarter: 2025Q1

REPORT INFORMATION
  Report Type: Spontaneous
  Country: CA (occurrence: CA)
  Receive Date: 20240825
  Receipt Date: 20250324
  Transmission Date: 20250409
  Serious: Yes (Death, Hospitalization, Other)
  Sender: DR REDDYS
  Company Number: None

PATIENT
  Age: 71 Year
  Sex: Male

DRUGS (2)
  1. LENALIDOMIDE [Suspect]
     Active Substance: LENALIDOMIDE
     Indication: Plasma cell myeloma
     Route: 048
  2. LENALIDOMIDE [Suspect]
     Active Substance: LENALIDOMIDE

REACTIONS (3)
  - Drug ineffective [Fatal]
  - Plasma cell myeloma [Fatal]
  - Death [Fatal]
